FAERS Safety Report 16146272 (Version 1)
Quarter: 2019Q2

REPORT INFORMATION
  Report Type: Spontaneous
  Country: US (occurrence: US)
  Receive Date: 20190402
  Receipt Date: 20190402
  Transmission Date: 20190711
  Serious: No
  Sender: FDA-Public Use
  Company Number: US-PFIZER INC-2019136108

PATIENT
  Age: 17 Year
  Sex: Male
  Weight: 66.67 kg

DRUGS (1)
  1. XELJANZ XR [Suspect]
     Active Substance: TOFACITINIB CITRATE
     Indication: RHEUMATOID ARTHRITIS
     Dosage: 11 MG, DAILY
     Dates: start: 20181220

REACTIONS (5)
  - Pain [Unknown]
  - Product use issue [Unknown]
  - Epistaxis [Unknown]
  - Gait disturbance [Unknown]
  - Arthralgia [Unknown]
